FAERS Safety Report 8759960 (Version 1)
Quarter: 2012Q4

REPORT INFORMATION
  Report Type: 
  Country: JP (occurrence: JP)
  Receive Date: 20120829
  Receipt Date: 20120829
  Transmission Date: 20130627
  Serious: Yes (Other)
  Sender: FDA-Public Use
  Company Number: JP-GLAXOSMITHKLINE-B0825126A

PATIENT
  Age: 75 Year
  Sex: Male

DRUGS (4)
  1. FLUTIDE [Suspect]
     Indication: ASTHMA
     Dosage: 400MCG Twice per day
     Route: 055
     Dates: start: 2010
  2. FLUTIDE [Suspect]
     Indication: ASTHMA
     Dosage: 200MCG Twice per day
     Route: 055
  3. FLUTIDE [Suspect]
     Indication: ASTHMA
     Dosage: 200MCG Per day
     Route: 055
  4. FLUTIDE [Suspect]
     Indication: ASTHMA
     Dosage: 200MCG Twice per day
     Route: 055

REACTIONS (4)
  - Oesophageal candidiasis [Unknown]
  - Dysphonia [Unknown]
  - Leukoplakia oesophageal [Unknown]
  - Sensation of foreign body [Unknown]
